FAERS Safety Report 4591515-4 (Version None)
Quarter: 2005Q1

REPORT INFORMATION
  Report Type: 
  Country: None (occurrence: None)
  Receive Date: 20050223
  Receipt Date: 20050223
  Transmission Date: 20050727
  Serious: Yes (Life-Threatening, Hospitalization, Other)
  Sender: FDA-Public Use
  Company Number: None

PATIENT
  Age: 66 Year
  Sex: Female
  Weight: 68.0396 kg

DRUGS (1)
  1. ZETIA [Suspect]
     Indication: BLOOD CHOLESTEROL INCREASED
     Dosage: PO -QD
     Route: 048
     Dates: start: 20030701, end: 20050115

REACTIONS (9)
  - ABDOMINAL DISCOMFORT [None]
  - ABDOMINAL PAIN [None]
  - CHOKING SENSATION [None]
  - CHOLELITHIASIS [None]
  - GASTROINTESTINAL DISORDER [None]
  - HAEMORRHAGE [None]
  - PANCREATITIS [None]
  - POST PROCEDURAL HAEMORRHAGE [None]
  - TREATMENT NONCOMPLIANCE [None]
